FAERS Safety Report 8043523-9 (Version None)
Quarter: 2012Q1

REPORT INFORMATION
  Report Type: 
  Country: None (occurrence: None)
  Receive Date: 20120112
  Receipt Date: 20120110
  Transmission Date: 20120608
  Serious: Yes (Hospitalization)
  Sender: FDA-Public Use
  Company Number: IT-PFIZER INC-2012006812

PATIENT
  Sex: Male

DRUGS (1)
  1. REFACTO [Suspect]
     Indication: HAEMOPHILIA
     Dosage: 2000, UNKNOWN

REACTIONS (1)
  - GAIT DISTURBANCE [None]
